FAERS Safety Report 8985029 (Version 4)
Quarter: 2013Q4

REPORT INFORMATION
  Report Type: Spontaneous
  Country: US (occurrence: US)
  Receive Date: 20121226
  Receipt Date: 20131018
  Transmission Date: 20140711
  Serious: Yes (Hospitalization, Disabling)
  Sender: FDA-Public Use
  Company Number: US-ASTRAZENECA-2012SE94653

PATIENT
  Age: 15514 Day
  Sex: Female
  Weight: 64.9 kg

DRUGS (30)
  1. NEXIUM [Suspect]
     Indication: GASTROOESOPHAGEAL REFLUX DISEASE
     Dosage: 40 MG ONE TIMES A DAY AND THEN TWO TIMES A DAY
     Route: 048
  2. NEXIUM [Suspect]
     Indication: HIATUS HERNIA
     Dosage: 40 MG ONE TIMES A DAY AND THEN TWO TIMES A DAY
     Route: 048
  3. NEXIUM [Suspect]
     Indication: GASTROOESOPHAGEAL REFLUX DISEASE
     Dosage: TWO TIMES
     Route: 048
     Dates: start: 20090527, end: 2013
  4. NEXIUM [Suspect]
     Indication: HIATUS HERNIA
     Dosage: TWO TIMES
     Route: 048
     Dates: start: 20090527, end: 2013
  5. NEXIUM [Suspect]
     Indication: GASTROOESOPHAGEAL REFLUX DISEASE
     Route: 048
     Dates: start: 20090527, end: 20130328
  6. NEXIUM [Suspect]
     Indication: HIATUS HERNIA
     Route: 048
     Dates: start: 20090527, end: 20130328
  7. NEXIUM [Suspect]
     Indication: GASTROOESOPHAGEAL REFLUX DISEASE
     Route: 048
     Dates: start: 20110706
  8. NEXIUM [Suspect]
     Indication: HIATUS HERNIA
     Route: 048
     Dates: start: 20110706
  9. OMEPRAZOLE [Suspect]
     Route: 048
  10. RANITIDINE [Concomitant]
     Dosage: 1/2 300 MG
  11. RANITIDINE [Concomitant]
     Dates: start: 20130520
  12. ACIPHEX [Concomitant]
     Dates: start: 20031110
  13. PROTONIX [Concomitant]
     Indication: GASTROOESOPHAGEAL REFLUX DISEASE
     Dates: start: 20031204, end: 20041029
  14. PROTONIX [Concomitant]
     Indication: HIATUS HERNIA
     Dates: start: 20031204, end: 20041029
  15. PROTONIX [Concomitant]
     Indication: GASTROOESOPHAGEAL REFLUX DISEASE
     Dates: start: 20041029, end: 20070816
  16. PROTONIX [Concomitant]
     Indication: HIATUS HERNIA
     Dates: start: 20041029, end: 20070816
  17. PROTONIX [Concomitant]
     Indication: GASTROOESOPHAGEAL REFLUX DISEASE
     Dates: start: 20080502, end: 20090504
  18. PROTONIX [Concomitant]
     Indication: HIATUS HERNIA
     Dates: start: 20080502, end: 20090504
  19. TUMS [Concomitant]
  20. ROLAIDS [Concomitant]
  21. PEPTO BISMOL [Concomitant]
  22. ABILIFY [Concomitant]
     Dates: end: 201304
  23. ADDERALL [Concomitant]
  24. XYZAL [Concomitant]
  25. CENESTIN [Concomitant]
     Dates: start: 1998
  26. CRESTOR [Concomitant]
     Indication: BLOOD CHOLESTEROL DECREASED
  27. EFFEXOR [Concomitant]
  28. ACCUTANE [Concomitant]
     Dates: start: 20020606
  29. ESTRA [Concomitant]
  30. EXCEDRIN [Concomitant]
     Indication: MIGRAINE
     Dosage: AS NEEDED

REACTIONS (34)
  - Syringomyelia [Unknown]
  - Carpal tunnel syndrome [Unknown]
  - Cubital tunnel syndrome [Unknown]
  - Clostridium difficile colitis [Unknown]
  - Appendicitis [Unknown]
  - Osteoporosis [Unknown]
  - Bone density decreased [Unknown]
  - Bone disorder [Unknown]
  - Amnesia [Unknown]
  - Hyperlipidaemia [Unknown]
  - Gastroenteritis [Unknown]
  - Colitis [Unknown]
  - Muscle spasms [Unknown]
  - Musculoskeletal pain [Unknown]
  - Foot fracture [Unknown]
  - Osteopenia [Unknown]
  - Oesophageal disorder [Unknown]
  - Gastritis [Unknown]
  - Gastritis erosive [Unknown]
  - Anxiety [Unknown]
  - Bipolar disorder [Unknown]
  - Glaucoma [Unknown]
  - Exostosis [Unknown]
  - Limb injury [Unknown]
  - Fatigue [Unknown]
  - Fibromyalgia [Unknown]
  - Osteoarthritis [Unknown]
  - Arthritis [Unknown]
  - Major depression [Unknown]
  - Epigastric discomfort [Unknown]
  - Bone loss [Unknown]
  - Weight decreased [Unknown]
  - Gastrointestinal disorder [Unknown]
  - Depression [Unknown]
